FAERS Safety Report 26217541 (Version 1)
Quarter: 2025Q4

REPORT INFORMATION
  Report Type: Spontaneous
  Country: US (occurrence: US)
  Receive Date: 20251231
  Receipt Date: 20251231
  Transmission Date: 20260119
  Serious: No
  Sender: Kenvue
  Company Number: US-KENVUE-20251205998

PATIENT
  Sex: Female

DRUGS (1)
  1. MENS ROGAINE EXTRA STRENGTH [Suspect]
     Active Substance: MINOXIDIL
     Indication: Alopecia
     Dosage: TWICE A DAY FOR ABOUT FIVE MONTHS
     Route: 048

REACTIONS (1)
  - Off label use [Unknown]
